FAERS Safety Report 23949373 (Version 1)
Quarter: 2024Q2

REPORT INFORMATION
  Report Type: Report from Study
  Country: US (occurrence: US)
  Receive Date: 20240607
  Receipt Date: 20240607
  Transmission Date: 20240715
  Serious: Yes (Other)
  Sender: FDA-Public Use
  Company Number: US-SUN PHARMACEUTICAL INDUSTRIES LTD-2024R1-449905

PATIENT
  Age: 31 Year
  Sex: Male

DRUGS (3)
  1. AMPHOTERICIN B [Suspect]
     Active Substance: AMPHOTERICIN B
     Indication: Fusarium infection
     Dosage: UNK
     Route: 065
  2. TERBINAFINE [Suspect]
     Active Substance: TERBINAFINE
     Indication: Fusarium infection
     Dosage: 250 MILLIGRAM, Q12H
     Route: 048
  3. VORICONAZOLE [Suspect]
     Active Substance: VORICONAZOLE
     Indication: Fusarium infection
     Dosage: UNK
     Route: 065

REACTIONS (2)
  - Condition aggravated [Unknown]
  - Disease progression [Unknown]
